FAERS Safety Report 22620861 (Version 1)
Quarter: 2023Q2

REPORT INFORMATION
  Report Type: Spontaneous
  Country: US (occurrence: None)
  Receive Date: 20230617
  Receipt Date: 20230617
  Transmission Date: 20230722
  Serious: Yes (Other)
  Sender: FDA-Public Use
  Company Number: None

PATIENT
  Age: 74 Year
  Sex: Male
  Weight: 83.7 kg

DRUGS (10)
  1. SIMVASTATIN [Suspect]
     Active Substance: SIMVASTATIN
     Indication: Blood cholesterol increased
     Dosage: OTHER QUANTITY : 1 TABLET(S);?FREQUENCY : AT BEDTIME;?
     Route: 048
     Dates: start: 20100131, end: 20230527
  2. LEVOTHYROXINE [Concomitant]
     Active Substance: LEVOTHYROXINE
  3. ATIVAN [Concomitant]
     Active Substance: LORAZEPAM
  4. FUSIDIC ACID [Concomitant]
     Active Substance: FUSIDIC ACID
  5. GABAPENTIN [Concomitant]
     Active Substance: GABAPENTIN
  6. DEVICE [Concomitant]
     Active Substance: DEVICE
  7. MELATONIN [Concomitant]
     Active Substance: MELATONIN
  8. Multi-vitamin [Concomitant]
  9. VITAMIN D [Concomitant]
     Active Substance: VITAMIN D NOS
  10. ASPIRIN [Concomitant]
     Active Substance: ASPIRIN

REACTIONS (8)
  - Therapy change [None]
  - Constipation [None]
  - Muscular weakness [None]
  - Muscle rigidity [None]
  - Burning sensation [None]
  - Pain [None]
  - Insomnia [None]
  - Loss of personal independence in daily activities [None]

NARRATIVE: CASE EVENT DATE: 20230617
